FAERS Safety Report 5502897-0 (Version None)
Quarter: 2007Q4

REPORT INFORMATION
  Report Type: 
  Country: None (occurrence: None)
  Receive Date: 20071029
  Receipt Date: 20071029
  Transmission Date: 20080405
  Serious: Yes (Other)
  Sender: FDA-Public Use
  Company Number: None

PATIENT
  Age: 34 Year
  Sex: Female
  Weight: 77.1115 kg

DRUGS (1)
  1. MIRENA [Suspect]
     Indication: CONTRACEPTION
     Dates: start: 20060215, end: 20071029

REACTIONS (5)
  - ABDOMINAL PAIN [None]
  - CYST RUPTURE [None]
  - ECZEMA [None]
  - PRURITUS [None]
  - URTICARIA [None]
